FAERS Safety Report 21732570 (Version 1)
Quarter: 2022Q4

REPORT INFORMATION
  Report Type: Spontaneous
  Country: FR (occurrence: FR)
  Receive Date: 20221215
  Receipt Date: 20221215
  Transmission Date: 20230113
  Serious: Yes (Hospitalization)
  Sender: FDA-Public Use
  Company Number: None

PATIENT
  Age: 4 Year
  Sex: Female
  Weight: 15.8 kg

DRUGS (4)
  1. AMOXICILLIN [Suspect]
     Active Substance: AMOXICILLIN
     Indication: Accidental exposure to product by child
     Dosage: 1 G, TOTAL
     Route: 048
     Dates: start: 20210304, end: 20210304
  2. PRAZEPAM [Suspect]
     Active Substance: PRAZEPAM
     Indication: Accidental exposure to product by child
     Dosage: UNK
     Route: 048
     Dates: start: 20210304, end: 20210304
  3. ACETAMINOPHEN\CAFFEINE\OPIUM [Suspect]
     Active Substance: ACETAMINOPHEN\CAFFEINE\OPIUM
     Indication: Accidental exposure to product by child
     Dosage: 1 DOSAGE FORM, 1 TOTAL
     Route: 048
     Dates: start: 20210304, end: 20210304
  4. IMOVANE [Suspect]
     Active Substance: ZOPICLONE
     Indication: Accidental exposure to product by child
     Dosage: 3.75 MG, 1 TOTAL
     Route: 048
     Dates: start: 20210304, end: 20210304

REACTIONS (5)
  - Gait disturbance [Recovered/Resolved]
  - Ataxia [Recovered/Resolved]
  - Accidental exposure to product by child [Recovered/Resolved]
  - Somnolence [Recovered/Resolved]
  - Accidental overdose [Recovered/Resolved]

NARRATIVE: CASE EVENT DATE: 20210304
